FAERS Safety Report 10152802 (Version 6)
Quarter: 2015Q1

REPORT INFORMATION
  Report Type: Report from Study
  Country: IL (occurrence: IL)
  Receive Date: 20140505
  Receipt Date: 20150225
  Transmission Date: 20150720
  Serious: Yes (Life-Threatening, Hospitalization)
  Sender: FDA-Public Use
  Company Number: PHHY2014IL051716

PATIENT
  Age: 76 Year
  Sex: Female

DRUGS (2)
  1. SANDOSTATIN LAR DEPOT [Suspect]
     Active Substance: OCTREOTIDE ACETATE
     Indication: CARCINOID TUMOUR
     Dosage: 20 MG, ONCE EVERY 4 WEEKS
     Route: 030
     Dates: start: 20140401, end: 20140401
  2. TPN [Concomitant]
     Active Substance: AMINO ACIDS\DEXTROSE\ELECTROLYTES NOS\SOYBEAN OIL
     Indication: PRODUCT USED FOR UNKNOWN INDICATION
     Route: 065

REACTIONS (16)
  - Abdominal abscess [Unknown]
  - Small intestinal perforation [Unknown]
  - Blood thyroid stimulating hormone increased [Unknown]
  - Weight decreased [Recovered/Resolved]
  - Pain [Not Recovered/Not Resolved]
  - Renal failure [Unknown]
  - Abdominal pain [Unknown]
  - Arrhythmia [Recovered/Resolved]
  - Lung disorder [Unknown]
  - Shock [Recovered/Resolved]
  - Asthenia [Not Recovered/Not Resolved]
  - Pneumothorax [Unknown]
  - Thyroid disorder [Not Recovered/Not Resolved]
  - Dysstasia [Unknown]
  - Coma [Recovered/Resolved]
  - Abdominal sepsis [Unknown]

NARRATIVE: CASE EVENT DATE: 20140410
